FAERS Safety Report 16055533 (Version 1)
Quarter: 2019Q1

REPORT INFORMATION
  Report Type: Report from Study
  Country: US (occurrence: US)
  Receive Date: 20190311
  Receipt Date: 20190311
  Transmission Date: 20190418
  Serious: Yes (Other)
  Sender: FDA-Public Use
  Company Number: US-ROCHE-2278230

PATIENT

DRUGS (6)
  1. ALISERTIB [Suspect]
     Active Substance: ALISERTIB
     Indication: MANTLE CELL LYMPHOMA
  2. BORTEZOMIB. [Suspect]
     Active Substance: BORTEZOMIB
     Indication: NON-HODGKIN^S LYMPHOMA REFRACTORY
     Dosage: 1 MG/M2 OR 1.3 MG/M2 ON DAYS 1, 8 AND 15
     Route: 058
  3. ALISERTIB [Suspect]
     Active Substance: ALISERTIB
     Indication: NON-HODGKIN^S LYMPHOMA REFRACTORY
     Dosage: 30 MG OR 40 MG: ON DAYS 1-7
     Route: 065
  4. RITUXIMAB. [Suspect]
     Active Substance: RITUXIMAB
     Indication: NON-HODGKIN^S LYMPHOMA REFRACTORY
     Route: 042
  5. RITUXIMAB. [Suspect]
     Active Substance: RITUXIMAB
     Indication: MANTLE CELL LYMPHOMA
  6. BORTEZOMIB. [Suspect]
     Active Substance: BORTEZOMIB
     Indication: MANTLE CELL LYMPHOMA

REACTIONS (16)
  - Thrombocytopenia [Unknown]
  - Anaemia [Unknown]
  - Respiratory failure [Unknown]
  - Pulmonary hypertension [Unknown]
  - Hypertension [Unknown]
  - Hyperkalaemia [Unknown]
  - Neutropenia [Unknown]
  - Pneumonitis [Unknown]
  - Febrile neutropenia [Unknown]
  - Fatigue [Unknown]
  - Hypotension [Unknown]
  - Leukopenia [Unknown]
  - Diarrhoea [Unknown]
  - Hyperuricaemia [Unknown]
  - Lung infection [Unknown]
  - Infusion related reaction [Unknown]
